FAERS Safety Report 4393821-5 (Version None)
Quarter: 2004Q3

REPORT INFORMATION
  Report Type: 
  Country: None (occurrence: None)
  Receive Date: 20040707
  Receipt Date: 20040705
  Transmission Date: 20050211
  Serious: Yes (Life-Threatening)
  Sender: FDA-Public Use
  Company Number: 001#3#2004-00137

PATIENT
  Age: 56 Year
  Sex: Female

DRUGS (6)
  1. ALPROSTADIL [Suspect]
     Indication: PERIPHERAL VASCULAR DISORDER
     Dosage: 1.2 DF
     Route: 042
     Dates: start: 20040608, end: 20040615
  2. HETASTARCH IN SODIUM CHLORIDE [Suspect]
     Dosage: 500 ML
     Route: 042
     Dates: start: 20040608, end: 20040615
  3. RAMIPRIL [Concomitant]
  4. ATORVASTATIN CALCIUM [Concomitant]
  5. METOPROLOL SUCCINATE [Concomitant]
  6. PHENPROCOUMON (PHENPROCOUMON) [Concomitant]

REACTIONS (1)
  - ACUTE LEFT VENTRICULAR FAILURE [None]
